FAERS Safety Report 17905558 (Version 1)
Quarter: 2020Q2

REPORT INFORMATION
  Report Type: Spontaneous
  Country: US (occurrence: US)
  Receive Date: 20200616
  Receipt Date: 20200616
  Transmission Date: 20200714
  Serious: No
  Sender: FDA-Public Use
  Company Number: US-ROCHE-2426553

PATIENT
  Sex: Female

DRUGS (2)
  1. ACTEMRA [Suspect]
     Active Substance: TOCILIZUMAB
     Indication: TEMPORAL ARTERITIS
     Dosage: STRENGTH 0.9 M?ACTPEN
     Route: 058
     Dates: start: 20190829
  2. ACYCLOVIR [ACICLOVIR] [Concomitant]
     Active Substance: ACYCLOVIR

REACTIONS (1)
  - Herpes zoster [Unknown]
